FAERS Safety Report 10482821 (Version 1)
Quarter: 2014Q3

REPORT INFORMATION
  Report Type: Spontaneous
  Country: PH (occurrence: PH)
  Receive Date: 20140929
  Receipt Date: 20140929
  Transmission Date: 20150326
  Serious: Yes (Death)
  Sender: FDA-Public Use
  Company Number: PH-009507513-1409PHL013249

PATIENT
  Sex: Female

DRUGS (1)
  1. FOSAVANCE [Suspect]
     Active Substance: ALENDRONATE SODIUM\CHOLECALCIFEROL
     Indication: OSTEOPOROSIS
     Dosage: 1 TABLET, QW, EVERY SATURDAY MORNING, ,STRENGTH 70MG+5600 (UNIT NOT PROVIDED)
     Route: 048
     Dates: end: 201402

REACTIONS (1)
  - Hepatic cirrhosis [Fatal]
